FAERS Safety Report 6078759-X (Version None)
Quarter: 2009Q1

REPORT INFORMATION
  Report Type: 
  Country: None (occurrence: None)
  Receive Date: 20090216
  Receipt Date: 20090116
  Transmission Date: 20090719
  Serious: No
  Sender: FDA-Public Use
  Company Number: US-BAYER-200910181BCC

PATIENT
  Age: 68 Year
  Sex: Male
  Weight: 73 kg

DRUGS (3)
  1. ALEVE (CAPLET) [Suspect]
     Indication: JOINT SPRAIN
     Dosage: UNIT DOSE: 220 MG
     Route: 048
     Dates: start: 20090109
  2. LISINOPRIL [Concomitant]
  3. DOXAZOSIN MESYLATE [Concomitant]

REACTIONS (1)
  - JOINT SPRAIN [None]
